FAERS Safety Report 12562904 (Version 1)
Quarter: 2016Q3

REPORT INFORMATION
  Report Type: Spontaneous
  Country: FR (occurrence: FR)
  Receive Date: 20160715
  Receipt Date: 20160715
  Transmission Date: 20161109
  Serious: Yes (Hospitalization)
  Sender: FDA-Public Use
  Company Number: FR-SA-2016SA126490

PATIENT
  Age: 70 Year
  Sex: Male

DRUGS (9)
  1. OFLOCET [Suspect]
     Active Substance: OFLOXACIN
     Indication: ANTIBIOTIC THERAPY
     Dosage: DOSE:,2 IN 1 JOUR?FORM: FILM COATED DIVISIBLE TABLET
     Route: 065
     Dates: start: 20160604, end: 20160615
  2. VIRLIX [Concomitant]
     Active Substance: CETIRIZINE HYDROCHLORIDE
     Dates: start: 20160330
  3. ZOPICLONE [Concomitant]
     Active Substance: ZOPICLONE
     Dates: start: 20160330
  4. LIPANTHYL [Concomitant]
     Active Substance: FENOFIBRATE
     Dates: start: 20160330
  5. INEXIUM [Concomitant]
     Active Substance: ESOMEPRAZOLE
     Dates: start: 20160330
  6. RIFADINE [Suspect]
     Active Substance: RIFAMPIN
     Indication: ANTIBIOTIC THERAPY
     Route: 042
     Dates: start: 20160604, end: 20160606
  7. VANCOMYCIN [Suspect]
     Active Substance: VANCOMYCIN
     Indication: ANTIBIOTIC THERAPY
     Route: 042
     Dates: start: 20160531, end: 20160604
  8. GENTAMICIN. [Suspect]
     Active Substance: GENTAMICIN
     Indication: ANTIBIOTIC THERAPY
     Route: 042
     Dates: start: 20160531, end: 20160604
  9. SINGULAIR [Concomitant]
     Active Substance: MONTELUKAST SODIUM
     Dates: start: 20160330

REACTIONS (1)
  - Vascular purpura [Recovering/Resolving]

NARRATIVE: CASE EVENT DATE: 20160605
